FAERS Safety Report 14253616 (Version 3)
Quarter: 2019Q1

REPORT INFORMATION
  Report Type: Report from Study
  Country: US (occurrence: US)
  Receive Date: 20171205
  Receipt Date: 20190222
  Transmission Date: 20190417
  Serious: Yes (Hospitalization)
  Sender: FDA-Public Use
  Company Number: US-BAUSCH-BL-2017-030779

PATIENT
  Sex: Female
  Weight: 59.93 kg

DRUGS (7)
  1. LACTULOSE. [Concomitant]
     Active Substance: LACTULOSE
     Indication: GASTROINTESTINAL MOTILITY DISORDER
     Dosage: TWO TO THREE TIMES A DAY
  2. ESCITALOPRAM [Concomitant]
     Active Substance: ESCITALOPRAM OXALATE
     Indication: ANXIETY
  3. XIFAXAN [Suspect]
     Active Substance: RIFAXIMIN
     Indication: HEPATIC ENCEPHALOPATHY
     Route: 048
     Dates: end: 2017
  4. ESCITALOPRAM [Concomitant]
     Active Substance: ESCITALOPRAM OXALATE
     Indication: DEPRESSION
  5. SODIUM BICARBONATE. [Concomitant]
     Active Substance: SODIUM BICARBONATE
     Indication: PRODUCT USED FOR UNKNOWN INDICATION
  6. VITAMIN D3 [Concomitant]
     Active Substance: CHOLECALCIFEROL
     Indication: PRODUCT USED FOR UNKNOWN INDICATION
  7. XIFAXAN [Suspect]
     Active Substance: RIFAXIMIN
     Route: 048

REACTIONS (6)
  - Therapy cessation [Recovered/Resolved]
  - General physical health deterioration [Not Recovered/Not Resolved]
  - Ammonia increased [Unknown]
  - Product availability issue [Recovered/Resolved]
  - Drug ineffective [Not Recovered/Not Resolved]
  - Speech disorder [Not Recovered/Not Resolved]

NARRATIVE: CASE EVENT DATE: 2017
